FAERS Safety Report 4905288-6 (Version None)
Quarter: 2006Q1

REPORT INFORMATION
  Report Type: 
  Country: None (occurrence: None)
  Receive Date: 20060208
  Receipt Date: 20050409
  Transmission Date: 20060701
  Serious: Yes (Death, Other)
  Sender: FDA-Public Use
  Company Number: PHHO2005IT05797

PATIENT
  Age: 56 Year
  Sex: Male

DRUGS (2)
  1. SIMULECT V PREDNISONE/METHYLPREDNISOLONE [Suspect]
     Indication: LIVER TRANSPLANT
     Dosage: 100 MG/DAY
     Route: 048
     Dates: start: 20030812, end: 20040812
  2. NEORAL [Suspect]
     Indication: LIVER TRANSPLANT
     Dosage: 100 MG/DAY
     Route: 048
     Dates: start: 20040213, end: 20040812

REACTIONS (3)
  - DISEASE PROGRESSION [None]
  - HEPATIC NEOPLASM MALIGNANT RECURRENT [None]
  - THERAPEUTIC EMBOLISATION [None]
